FAERS Safety Report 15132172 (Version 5)
Quarter: 2018Q3

REPORT INFORMATION
  Report Type: Spontaneous
  Country: US (occurrence: US)
  Receive Date: 20180711
  Receipt Date: 20180918
  Transmission Date: 20181010
  Serious: Yes (Life-Threatening, Other)
  Sender: FDA-Public Use
  Company Number: PHEH2018US027306

PATIENT
  Age: 53 Year
  Sex: Female

DRUGS (2)
  1. PREDNISONE TABLETS USP [Suspect]
     Active Substance: PREDNISONE
     Indication: PRODUCT USED FOR UNKNOWN INDICATION
     Dosage: UNK
     Route: 065
  2. HIDROCORTISON [Suspect]
     Active Substance: HYDROCORTISONE
     Indication: PRODUCT USED FOR UNKNOWN INDICATION
     Dosage: UNK UNK, QMO
     Route: 065

REACTIONS (11)
  - Feeling abnormal [Unknown]
  - Pruritus [Unknown]
  - Overdose [Unknown]
  - Rash [Unknown]
  - Hypoacusis [Recovering/Resolving]
  - Hyperhidrosis [Unknown]
  - Haemorrhage [Unknown]
  - Contusion [Unknown]
  - Pain in extremity [Unknown]
  - Pain [Unknown]
  - Psoriasis [Unknown]

NARRATIVE: CASE EVENT DATE: 201510
